FAERS Safety Report 14424991 (Version 3)
Quarter: 2018Q1

REPORT INFORMATION
  Report Type: Spontaneous
  Country: IE (occurrence: IE)
  Receive Date: 20180123
  Receipt Date: 20180323
  Transmission Date: 20180509
  Serious: Yes (Congenital Anomaly, Other)
  Sender: FDA-Public Use
  Company Number: IE-ABBVIE-17P-229-2169901-00

PATIENT

DRUGS (1)
  1. VALPROATE SALT [Suspect]
     Active Substance: VALPROATE SODIUM
     Indication: MATERNAL EXPOSURE TIMING UNSPECIFIED
     Route: 065

REACTIONS (5)
  - Unevaluable event [Unknown]
  - Congenital anomaly [Unknown]
  - Foetal exposure during pregnancy [Unknown]
  - Developmental delay [Unknown]
  - Foetal anticonvulsant syndrome [Unknown]

NARRATIVE: CASE EVENT DATE: 2013
